FAERS Safety Report 6251678-1 (Version None)
Quarter: 2009Q2

REPORT INFORMATION
  Report Type: 
  Country: None (occurrence: None)
  Receive Date: 20090630
  Receipt Date: 20090622
  Transmission Date: 20091009
  Serious: Yes (Hospitalization)
  Sender: FDA-Public Use
  Company Number: IE-ABBOTT-09P-229-0581634-00

PATIENT
  Age: 5 Year
  Sex: Female
  Weight: 16 kg

DRUGS (4)
  1. KLACID FOR ORAL SUSPENSION [Suspect]
     Indication: HELICOBACTER INFECTION
     Dates: start: 20090507
  2. KLACID FOR ORAL SUSPENSION [Suspect]
     Dosage: HALF A TABLET CRUSHED, TOOK WITH ICE CREAM
  3. PINAMOX [Suspect]
     Indication: HELICOBACTER INFECTION
     Dates: start: 20090507
  4. PRILOSEC [Concomitant]
     Indication: HELICOBACTER INFECTION

REACTIONS (2)
  - MALAISE [None]
  - VOMITING [None]
